FAERS Safety Report 16480503 (Version 2)
Quarter: 2024Q3

REPORT INFORMATION
  Report Type: Spontaneous
  Country: JP (occurrence: JP)
  Receive Date: 20190626
  Receipt Date: 20240701
  Transmission Date: 20241017
  Serious: Yes (Hospitalization)
  Sender: DAIICHI
  Company Number: JP-DSJP-DSJ-2019-122105

PATIENT
  Age: 78 Year
  Sex: Male

DRUGS (6)
  1. EDOXABAN TOSYLATE [Suspect]
     Active Substance: EDOXABAN TOSYLATE
     Indication: Atrial fibrillation
     Dosage: 30MG/DAY
     Route: 048
  2. EDOXABAN TOSYLATE [Suspect]
     Active Substance: EDOXABAN TOSYLATE
     Dosage: UNK
     Route: 048
  3. EDOXABAN TOSYLATE [Suspect]
     Active Substance: EDOXABAN TOSYLATE
     Dosage: UNK
     Route: 048
  4. EPINEPHRINE [Suspect]
     Active Substance: EPINEPHRINE
     Indication: Gastrointestinal endoscopic therapy
     Dosage: UNK
     Route: 065
  5. INDIGO CARMINE [Concomitant]
     Active Substance: INDIGOTINDISULFONATE SODIUM
     Indication: Gastrointestinal endoscopic therapy
     Dosage: UNK
     Route: 065
  6. FRUCTOSE\GLYCERIN [Concomitant]
     Active Substance: FRUCTOSE\GLYCERIN
     Indication: Gastrointestinal endoscopic therapy
     Dosage: UNK
     Route: 065

REACTIONS (4)
  - Large intestine polyp [Recovered/Resolved]
  - Intussusception [Recovered/Resolved]
  - Post procedural haemorrhage [Recovered/Resolved]
  - Occult blood positive [Recovered/Resolved]
